FAERS Safety Report 9129715 (Version 4)
Quarter: 2013Q2

REPORT INFORMATION
  Report Type: Report from Study
  Country: DE (occurrence: DE)
  Receive Date: 20130125
  Receipt Date: 20130627
  Transmission Date: 20140414
  Serious: Yes (Hospitalization)
  Sender: FDA-Public Use
  Company Number: DE-ROCHE-1183392

PATIENT
  Age: 70 Year
  Sex: Female
  Weight: 62 kg

DRUGS (5)
  1. BEVACIZUMAB [Suspect]
     Indication: OVARIAN CANCER
     Dosage: LAST DOSE TAKEN PRIOR TO SAE ON 31/DEC/2012
     Route: 042
     Dates: start: 20121028, end: 20130101
  2. CARBOPLATIN [Suspect]
     Indication: OVARIAN CANCER
     Dosage: LAST DOSE TAKEN PRIOR TO SAE ON 31/DEC/2012
     Route: 042
     Dates: start: 20121029, end: 20130101
  3. PACLITAXEL [Suspect]
     Indication: OVARIAN CANCER
     Dosage: LAST DOSE TAKEN PRIOR TO SAE ON 31/DEC/2012
     Route: 042
     Dates: start: 20121029, end: 20130101
  4. GRANOCYTE [Concomitant]
     Indication: LEUKOPENIA
     Dosage: DOSE: 34000 IE. MOST RECENT DOSE PRIOR TO SAE ON 08/JAN/2013
     Route: 058
     Dates: start: 20130103
  5. METOPROLOL [Concomitant]
     Indication: HYPERTENSION
     Route: 048
     Dates: start: 20130110

REACTIONS (2)
  - Pancytopenia [Recovered/Resolved]
  - Cardiomyopathy [Recovered/Resolved]
